FAERS Safety Report 15992172 (Version 2)
Quarter: 2019Q1

REPORT INFORMATION
  Report Type: Spontaneous
  Country: US (occurrence: US)
  Receive Date: 20190221
  Receipt Date: 20190322
  Transmission Date: 20190418
  Serious: No
  Sender: FDA-Public Use
  Company Number: US-BAUSCH-BL-2019-005179

PATIENT
  Age: 43 Year
  Sex: Female
  Weight: 77.18 kg

DRUGS (2)
  1. SILIQ [Suspect]
     Active Substance: BRODALUMAB
     Indication: PRODUCT USE IN UNAPPROVED INDICATION
     Route: 058
     Dates: start: 20190208, end: 2019
  2. SILIQ [Suspect]
     Active Substance: BRODALUMAB
     Indication: PSORIATIC ARTHROPATHY
     Dosage: END OF DEC/2018 OR JAN/2019 FOR 3 WKS?INJECT 210 MG SUBCUTANEOUSLY AT WEEK 4, THEN EVERY TWO WEEKS
     Route: 058
     Dates: start: 201808

REACTIONS (10)
  - Pain in extremity [Unknown]
  - Product use in unapproved indication [Unknown]
  - Vomiting [Unknown]
  - Gastroenteritis viral [Recovered/Resolved]
  - Sinusitis [Recovered/Resolved]
  - Headache [Unknown]
  - Arthralgia [Unknown]
  - Symptom recurrence [Unknown]
  - Anxiety [Unknown]
  - Panic attack [Unknown]

NARRATIVE: CASE EVENT DATE: 201808
